FAERS Safety Report 22734477 (Version 2)
Quarter: 2023Q4

REPORT INFORMATION
  Report Type: Spontaneous
  Country: US (occurrence: US)
  Receive Date: 20230721
  Receipt Date: 20231015
  Transmission Date: 20240109
  Serious: No
  Sender: FDA-Public Use
  Company Number: US-SA-SAC20230719000895

PATIENT
  Age: 34 Year
  Sex: Female
  Weight: 120.2 kg

DRUGS (10)
  1. DUPIXENT [Suspect]
     Active Substance: DUPILUMAB
     Indication: Eosinophilic oesophagitis
     Dosage: 300 MG, QW
     Route: 058
  2. VIIBRYD [Concomitant]
     Active Substance: VILAZODONE HYDROCHLORIDE
     Dosage: UNK
  3. LISINOPRIL [Concomitant]
     Active Substance: LISINOPRIL
     Dosage: UNK
  4. BUPROPION HYDROCHLORIDE [Concomitant]
     Active Substance: BUPROPION HYDROCHLORIDE
     Dosage: UNK
  5. GLUCOSAMINE CHONDROITIN MSM [CHONDROITIN SULFATE;GLUCOSAMINE SULFATE;M [Concomitant]
  6. MINERALS\VITAMINS [Concomitant]
     Active Substance: MINERALS\VITAMINS
  7. ACETAZOLAMIDE [Concomitant]
     Active Substance: ACETAZOLAMIDE
  8. BUPROPION HYDROCHLORIDE XL [Concomitant]
     Active Substance: BUPROPION HYDROCHLORIDE
  9. VITAMIN B12 [Concomitant]
     Active Substance: CYANOCOBALAMIN
  10. VITAMIN D3 [Concomitant]
     Active Substance: CHOLECALCIFEROL

REACTIONS (6)
  - Urinary tract infection [Unknown]
  - Injection site warmth [Recovered/Resolved]
  - Injection site rash [Unknown]
  - Injection site erythema [Unknown]
  - Injection site bruising [Unknown]
  - Injection site pruritus [Recovered/Resolved]
